FAERS Safety Report 24298567 (Version 1)
Quarter: 2024Q3

REPORT INFORMATION
  Report Type: Spontaneous
  Country: IT (occurrence: IT)
  Receive Date: 20240909
  Receipt Date: 20240909
  Transmission Date: 20241016
  Serious: Yes (Hospitalization)
  Sender: Waylis
  Company Number: None

PATIENT
  Age: 23 Year
  Sex: Female

DRUGS (6)
  1. VALIUM [Suspect]
     Active Substance: DIAZEPAM
     Indication: Product used for unknown indication
     Dosage: 10 GTT
     Route: 050
     Dates: start: 20240829
  2. LORAZEPAM [Suspect]
     Active Substance: LORAZEPAM
     Indication: Product used for unknown indication
     Dosage: LA PZ NON RICORDA LA QUANTITA DI UNITA POSOLOGICHE ASSUNTE?THE PATIENT DOES NOT REMEMBER THE AMOU...
     Route: 050
     Dates: start: 20240829
  3. VENLAFAXINE HYDROCHLORIDE [Suspect]
     Active Substance: VENLAFAXINE HYDROCHLORIDE
     Indication: Product used for unknown indication
     Dosage: LA PZ NON RICORDA LA QUANTITA DI UNITA POSOLOGICHE ASSUNTE (CONFEZIONE DA 150 MG/CP)?THE PATIENT ...
     Route: 050
     Dates: start: 20240829
  4. TALOFEN [Suspect]
     Active Substance: PROMAZINE HYDROCHLORIDE
     Indication: Product used for unknown indication
     Dosage: LA PZ NON RICORDA LA QUANTITA DI UNITA POSOLOGICHE ASSUNTE?THE PATIENT DOES NOT REMEMBER THE AMOU...
     Route: 050
     Dates: start: 20240829
  5. ARIPIPRAZOLE [Suspect]
     Active Substance: ARIPIPRAZOLE
     Indication: Product used for unknown indication
     Dosage: LA PZ NON RICORDA LA QUANTITA DI UNITA POSOLOGICHE ASSUNTE?THE PATIENT DOES NOT REMEMBER THE AMOU...
     Route: 050
     Dates: start: 20240829
  6. AUGMENTIN [Concomitant]
     Active Substance: AMOXICILLIN\CLAVULANATE POTASSIUM
     Indication: Tonsillitis
     Dosage: 2 CP
     Dates: start: 20240828

REACTIONS (4)
  - Sopor [Recovered/Resolved]
  - Intentional self-injury [Recovered/Resolved]
  - Apathy [Recovering/Resolving]
  - Depressed mood [Recovering/Resolving]

NARRATIVE: CASE EVENT DATE: 20240829
